FAERS Safety Report 4443627-3 (Version None)
Quarter: 2004Q3

REPORT INFORMATION
  Report Type: 
  Country: None (occurrence: None)
  Receive Date: 20040830
  Receipt Date: 20040817
  Transmission Date: 20050211
  Serious: Yes (Other)
  Sender: FDA-Public Use
  Company Number: A0522374A

PATIENT
  Age: 66 Year
  Sex: Female

DRUGS (3)
  1. NICODERM CQ [Suspect]
     Indication: SMOKING CESSATION THERAPY
     Dosage: 21 MG TRANSDERMAL
     Route: 062
     Dates: start: 20040622
  2. NICODERM CQ [Suspect]
     Indication: SMOKING CESSATION THERAPY
     Dosage: 14 MG/TRANSDERMAL
     Route: 062
  3. MULTI-VITAMIN [Concomitant]

REACTIONS (5)
  - CHOKING SENSATION [None]
  - DYSPNOEA [None]
  - INSOMNIA [None]
  - MEDICATION ERROR [None]
  - NIGHTMARE [None]
